FAERS Safety Report 4989284-9 (Version None)
Quarter: 2006Q2

REPORT INFORMATION
  Report Type: 
  Country: None (occurrence: None)
  Receive Date: 20060425
  Receipt Date: 20060411
  Transmission Date: 20061013
  Serious: Yes (Hospitalization, Other)
  Sender: FDA-Public Use
  Company Number: 2005073704

PATIENT
  Age: 57 Year
  Sex: Male
  Weight: 85.7298 kg

DRUGS (7)
  1. BEXTRA [Suspect]
     Indication: PAIN
     Dosage: 20 MG (20 MG, 1 IN 1 D), ORAL
     Route: 048
     Dates: start: 20020401
  2. VIOXX [Suspect]
     Indication: ILL-DEFINED DISORDER
  3. COLCHICINE [Concomitant]
  4. ZOCOR [Concomitant]
  5. NIASPAN [Concomitant]
  6. PRILOSEC [Concomitant]
  7. ZETIA [Concomitant]

REACTIONS (4)
  - CARDIOGENIC SHOCK [None]
  - CORONARY ARTERY STENOSIS [None]
  - MYOCARDIAL INFARCTION [None]
  - PNEUMONIA [None]
